FAERS Safety Report 8351021 (Version 2)
Quarter: 2013Q3

REPORT INFORMATION
  Report Type: Spontaneous
  Country: US (occurrence: US)
  Receive Date: 20120124
  Receipt Date: 20130712
  Transmission Date: 20140515
  Serious: Yes (Death)
  Sender: FDA-Public Use
  Company Number: US-ROCHE-1032890

PATIENT
  Age: 77 Year
  Sex: Male

DRUGS (14)
  1. AVASTIN [Suspect]
     Indication: BLADDER CANCER
     Dosage: FREQUENCY X1 DOSE
     Route: 042
     Dates: start: 20100312, end: 20100312
  2. CISPLATIN [Suspect]
     Indication: BLADDER CANCER
     Dosage: X 1 DOSE
     Route: 042
     Dates: start: 20100312, end: 20100312
  3. DOCETAXEL [Suspect]
     Indication: BLADDER CANCER
     Dosage: X 1 DOSE
     Route: 042
     Dates: start: 20100312, end: 20100312
  4. METROGEL [Concomitant]
     Indication: PRODUCT USED FOR UNKNOWN INDICATION
     Route: 061
  5. PEGFILGRASTIM [Concomitant]
     Indication: PROPHYLAXIS
     Dosage: X 1 DOSE
     Route: 058
     Dates: start: 20100314
  6. DIGOXIN [Concomitant]
     Dosage: DAILY
     Route: 048
  7. ATENOLOL [Concomitant]
     Dosage: DAILY
     Route: 048
  8. OS-CAL [Concomitant]
     Dosage: DAILY
     Route: 048
  9. NIASPAN [Concomitant]
     Dosage: DAILY
     Route: 065
  10. CRESTOR [Concomitant]
     Dosage: DAILY
     Route: 048
  11. ASPIRIN [Concomitant]
     Dosage: DAILY
     Route: 048
  12. COUMADIN [Concomitant]
     Dosage: DAILY DOSE 2.5 MG ALTERINATING WITH 5 MG EVERY OTHER DAY.
     Route: 065
  13. WARFARIN [Concomitant]
     Route: 048
  14. TETRACYCLIN [Concomitant]
     Route: 048

REACTIONS (6)
  - Neutropenia [Fatal]
  - Hypotension [Fatal]
  - Renal failure acute [Fatal]
  - Upper gastrointestinal haemorrhage [Fatal]
  - Septic shock [Fatal]
  - Cerebrovascular accident [Fatal]
